FAERS Safety Report 25811842 (Version 1)
Quarter: 2025Q3

REPORT INFORMATION
  Report Type: Spontaneous
  Country: GB (occurrence: GB)
  Receive Date: 20250917
  Receipt Date: 20250917
  Transmission Date: 20251021
  Serious: Yes (Other)
  Sender: TEVA
  Company Number: None

PATIENT
  Age: 67 Year
  Sex: Female
  Weight: 75 kg

DRUGS (9)
  1. EZETIMIBE [Suspect]
     Active Substance: EZETIMIBE
     Indication: Ill-defined disorder
     Route: 065
     Dates: start: 20250711
  2. HYDROCORTISONE [Concomitant]
     Active Substance: HYDROCORTISONE
     Indication: Ill-defined disorder
     Dosage: APPLY
     Dates: start: 20250619, end: 20250626
  3. RAMIPRIL [Concomitant]
     Active Substance: RAMIPRIL
     Indication: Ill-defined disorder
     Dates: start: 20250211
  4. ROSUVASTATIN [Concomitant]
     Active Substance: ROSUVASTATIN
     Indication: Ill-defined disorder
     Dates: start: 20250411, end: 20250711
  5. MELOXICAM [Concomitant]
     Active Substance: MELOXICAM
     Indication: Pain
     Dosage: WHEN REQUIRED WITH FOOD
     Dates: start: 20250411
  6. HYLO NIGHT [Concomitant]
     Indication: Ill-defined disorder
     Dosage: APPLY TO THE AFFECTED EYES AT NIGHT
     Dates: start: 20240819
  7. AMLODIPINE [Concomitant]
     Active Substance: AMLODIPINE BESYLATE
     Indication: Ill-defined disorder
     Dates: start: 20250211
  8. OMEPRAZOLE [Concomitant]
     Active Substance: OMEPRAZOLE
     Indication: Ill-defined disorder
     Dosage: MORNING WHEN TAKING
     Dates: start: 20250609
  9. EYEAZE [Concomitant]
     Indication: Ill-defined disorder
     Dates: start: 20250609

REACTIONS (4)
  - Muscular weakness [Unknown]
  - Muscle spasms [Recovering/Resolving]
  - Rash erythematous [Recovering/Resolving]
  - Lethargy [Recovering/Resolving]
